FAERS Safety Report 5124748-9 (Version None)
Quarter: 2006Q4

REPORT INFORMATION
  Report Type: 
  Country: None (occurrence: None)
  Receive Date: 20061011
  Receipt Date: 20060227
  Transmission Date: 20070319
  Serious: Yes (Other)
  Sender: FDA-Public Use
  Company Number: PHRM2006AU00925

PATIENT
  Sex: Male

DRUGS (3)
  1. CLOZARIL [Suspect]
     Indication: SCHIZOPHRENIA
     Dosage: 600 MG/DAY
     Route: 048
     Dates: start: 20020326
  2. MABTHERA [Concomitant]
     Dates: start: 20060929
  3. CYCLOPHOSPHAMIDE W/VINCRISTINE/PREDNISONE [Concomitant]
     Dates: start: 20060929

REACTIONS (2)
  - NON-HODGKIN'S LYMPHOMA [None]
  - NON-HODGKIN'S LYMPHOMA STAGE III [None]
